FAERS Safety Report 21377405 (Version 1)
Quarter: 2022Q3

REPORT INFORMATION
  Report Type: Spontaneous
  Country: US (occurrence: US)
  Receive Date: 20220926
  Receipt Date: 20220926
  Transmission Date: 20221027
  Serious: No
  Sender: FDA-Public Use
  Company Number: US-PFIZER INC-PV202200069410

PATIENT
  Age: 58 Year
  Sex: Male

DRUGS (1)
  1. XELJANZ XR [Suspect]
     Active Substance: TOFACITINIB CITRATE
     Dosage: 11 MG
     Dates: start: 20220624

REACTIONS (7)
  - Abdominal discomfort [Unknown]
  - Chest pain [Unknown]
  - Chest discomfort [Unknown]
  - Axillary pain [Unknown]
  - Decubitus ulcer [Unknown]
  - Vomiting [Unknown]
  - Feeling cold [Unknown]

NARRATIVE: CASE EVENT DATE: 20220101
